FAERS Safety Report 4642986-6 (Version None)
Quarter: 2005Q2

REPORT INFORMATION
  Report Type: 
  Country: None (occurrence: None)
  Receive Date: 20050421
  Receipt Date: 20050217
  Transmission Date: 20051028
  Serious: Yes (Hospitalization)
  Sender: FDA-Public Use
  Company Number: 2005034048

PATIENT
  Age: 74 Year
  Sex: Female

DRUGS (1)
  1. TOLTERODINE TARTRATE [Suspect]
     Indication: HYPERTONIC BLADDER
     Dosage: ORAL
     Route: 048
     Dates: start: 20030101, end: 20030101

REACTIONS (3)
  - BLADDER OBSTRUCTION [None]
  - URINARY RETENTION [None]
  - UTERINE PROLAPSE [None]
